FAERS Safety Report 23781490 (Version 1)
Quarter: 2024Q2

REPORT INFORMATION
  Report Type: Spontaneous
  Country: ZA (occurrence: None)
  Receive Date: 20240425
  Receipt Date: 20240425
  Transmission Date: 20240716
  Serious: Yes (Hospitalization)
  Sender: FDA-Public Use
  Company Number: 2024A093569

PATIENT
  Age: 73 Year
  Sex: Female

DRUGS (5)
  1. DAPAGLIFLOZIN PROPANEDIOL [Suspect]
     Active Substance: DAPAGLIFLOZIN PROPANEDIOL
     Route: 048
  2. INDAPAMIDE [Concomitant]
     Active Substance: INDAPAMIDE
  3. LIPOGEN [Concomitant]
  4. ESOMEPRAZOLE [Concomitant]
     Active Substance: ESOMEPRAZOLE
  5. CANDASPOR [Concomitant]

REACTIONS (1)
  - Renal failure [Unknown]
